FAERS Safety Report 4786126-1 (Version None)
Quarter: 2005Q3

REPORT INFORMATION
  Report Type: 
  Country: None (occurrence: None)
  Receive Date: 20050930
  Receipt Date: 20050221
  Transmission Date: 20060218
  Serious: Yes (Hospitalization)
  Sender: FDA-Public Use
  Company Number: 2005FR-00288

PATIENT
  Age: 60 Year
  Sex: Female

DRUGS (7)
  1. ASPIRIN [Suspect]
     Indication: CEREBROVASCULAR ACCIDENT
     Dosage: 300MG ORAL
     Route: 048
     Dates: start: 19990101, end: 20050206
  2. DICLOFENAC SODIUM [Suspect]
     Indication: ARTHRALGIA
     Dosage: 50 MG ORAL
     Route: 048
     Dates: start: 20040101, end: 20050206
  3. FRUSEMIDE [Concomitant]
  4. LISINOPRIL [Concomitant]
  5. ALBUTEROL [Concomitant]
  6. BECLOMETHASONE DIPROPIONATE [Concomitant]
  7. COMBIVENT [Concomitant]

REACTIONS (2)
  - HELICOBACTER INFECTION [None]
  - UPPER GASTROINTESTINAL HAEMORRHAGE [None]
